FAERS Safety Report 10087026 (Version 1)
Quarter: 2014Q2

REPORT INFORMATION
  Report Type: Spontaneous
  Country: FR (occurrence: FR)
  Receive Date: 20140418
  Receipt Date: 20140418
  Transmission Date: 20141212
  Serious: Yes (Hospitalization, Other)
  Sender: FDA-Public Use
  Company Number: FR-ROXANE LABORATORIES, INC.-2014-RO-00628RO

PATIENT
  Age: 8 Year
  Sex: Male

DRUGS (7)
  1. MYCOPHENOLATE MOFETIL [Suspect]
     Indication: RENAL TRANSPLANT
     Route: 065
  2. MYCOPHENOLATE MOFETIL [Suspect]
     Route: 065
  3. MYCOPHENOLATE MOFETIL [Suspect]
     Route: 065
  4. TACROLIMUS [Suspect]
     Indication: RENAL TRANSPLANT
     Route: 065
  5. TACROLIMUS [Suspect]
     Route: 065
  6. TACROLIMUS [Suspect]
     Route: 065
  7. FUMAGILLIN [Suspect]
     Indication: MICROSPORIDIA INFECTION
     Dosage: 20 MG
     Route: 065

REACTIONS (5)
  - Microsporidia infection [Recovered/Resolved]
  - Alopecia [Unknown]
  - Trichophytosis [Unknown]
  - Thrombocytopenia [Recovered/Resolved]
  - Neutropenia [Recovered/Resolved]
